FAERS Safety Report 6527868-7 (Version None)
Quarter: 2010Q1

REPORT INFORMATION
  Report Type: 
  Country: None (occurrence: None)
  Receive Date: 20100105
  Receipt Date: 20100105
  Transmission Date: 20100710
  Serious: No
  Sender: FDA-Public Use
  Company Number: None

PATIENT
  Age: 38 Year
  Sex: Male

DRUGS (2)
  1. IOPROMIDE [Suspect]
     Indication: COMPUTERISED TOMOGRAM
     Dosage: 100 ML ONCE IV
     Route: 042
     Dates: start: 20091023, end: 20091023
  2. IOPROMIDE [Suspect]
     Indication: SCAN WITH CONTRAST
     Dosage: 100 ML ONCE IV
     Route: 042
     Dates: start: 20091023, end: 20091023

REACTIONS (5)
  - CONTRAST MEDIA REACTION [None]
  - NAUSEA [None]
  - RASH [None]
  - URTICARIA [None]
  - VOMITING [None]
